FAERS Safety Report 16795720 (Version 1)
Quarter: 2019Q3

REPORT INFORMATION
  Report Type: Spontaneous
  Country: US (occurrence: US)
  Receive Date: 20190910
  Receipt Date: 20190910
  Transmission Date: 20191005
  Serious: No
  Sender: FDA-Public Use
  Company Number: None

PATIENT
  Age: 58 Year
  Sex: Female
  Weight: 97.5 kg

DRUGS (15)
  1. MUPIROCIN TOPICAL [Concomitant]
  2. THIAMINE. [Concomitant]
     Active Substance: THIAMINE
  3. MAGNESIUM SULFATE. [Concomitant]
     Active Substance: MAGNESIUM SULFATE
  4. PREDNISONE. [Concomitant]
     Active Substance: PREDNISONE
  5. DUONEBS [Concomitant]
  6. CHLORHEXADINE [Concomitant]
     Active Substance: CHLORHEXIDINE
  7. CARVEDILOL. [Concomitant]
     Active Substance: CARVEDILOL
  8. LACOSAMIDE. [Concomitant]
     Active Substance: LACOSAMIDE
  9. RANITIDINE. [Concomitant]
     Active Substance: RANITIDINE
  10. LACTULOSE. [Concomitant]
     Active Substance: LACTULOSE
  11. ACETAMINOPHEN. [Concomitant]
     Active Substance: ACETAMINOPHEN
  12. PANTOPRAZOLE [Concomitant]
     Active Substance: PANTOPRAZOLE
  13. SULFAMETHOXAZOLE/TRIMETHOPRIM [Suspect]
     Active Substance: SULFAMETHOXAZOLE\TRIMETHOPRIM
     Indication: CULTURE WOUND POSITIVE
     Route: 048
     Dates: start: 20190831, end: 20190903
  14. AMLODIPINE [Concomitant]
     Active Substance: AMLODIPINE BESYLATE
  15. LOVENOX [Concomitant]
     Active Substance: ENOXAPARIN SODIUM

REACTIONS (4)
  - Sepsis [None]
  - Hypotension [None]
  - Tachycardia [None]
  - Hyperkalaemia [None]

NARRATIVE: CASE EVENT DATE: 20190831
